FAERS Safety Report 11239892 (Version 13)
Quarter: 2019Q3

REPORT INFORMATION
  Report Type: Spontaneous
  Country: US (occurrence: US)
  Receive Date: 20150706
  Receipt Date: 20190722
  Transmission Date: 20191004
  Serious: Yes (Life-Threatening, Other)
  Sender: FDA-Public Use
  Company Number: US-PFIZER INC-2015219688

PATIENT
  Age: 62 Year
  Sex: Male
  Weight: 90.72 kg

DRUGS (14)
  1. LYRICA [Suspect]
     Active Substance: PREGABALIN
     Dosage: 300 MG, 2X/DAY
     Route: 048
     Dates: start: 20170110
  2. LYRICA [Suspect]
     Active Substance: PREGABALIN
     Dosage: 300 MG (THREE CAPSULES), 2X/DAY
     Route: 048
     Dates: start: 20170403
  3. FINASTERIDE. [Concomitant]
     Active Substance: FINASTERIDE
     Dosage: UNK
  4. ASA [Concomitant]
     Active Substance: ASPIRIN
     Dosage: UNK
  5. LYRICA [Suspect]
     Active Substance: PREGABALIN
     Indication: NERVE INJURY
     Dosage: 300 MG (ONE CAPSULE), 2X/DAY
     Route: 048
     Dates: start: 2005
  6. LYRICA [Suspect]
     Active Substance: PREGABALIN
     Dosage: 300 MG (THREE CAPSULES), 2X/DAY
     Route: 048
     Dates: start: 20180108
  7. PLAVIX [Concomitant]
     Active Substance: CLOPIDOGREL BISULFATE
     Dosage: UNK
  8. PROTONIX [Concomitant]
     Active Substance: PANTOPRAZOLE SODIUM
     Dosage: UNK
  9. TRAMADOL. [Concomitant]
     Active Substance: TRAMADOL
     Dosage: UNK
  10. LYRICA [Suspect]
     Active Substance: PREGABALIN
     Indication: NEUROPATHY PERIPHERAL
     Dosage: 300 MG (THREE CAPSULES), 2X/DAY
     Route: 048
     Dates: start: 20151016
  11. SYNTHROID [Concomitant]
     Active Substance: LEVOTHYROXINE SODIUM
     Dosage: UNK
  12. LYRICA [Suspect]
     Active Substance: PREGABALIN
     Dosage: 300 MG (3 CAPSULES OF 100 MG), 2X/DAY
     Route: 048
     Dates: start: 20160629
  13. AMIODARONE [Concomitant]
     Active Substance: AMIODARONE
     Dosage: UNK
  14. ATIVAN [Concomitant]
     Active Substance: LORAZEPAM
     Dosage: UNK

REACTIONS (9)
  - Myocardial infarction [Unknown]
  - Pain [Unknown]
  - Withdrawal syndrome [Unknown]
  - Pyrexia [Unknown]
  - Hand deformity [Unknown]
  - Chills [Unknown]
  - Nervousness [Unknown]
  - Restlessness [Unknown]
  - Abdominal discomfort [Unknown]
